FAERS Safety Report 8016559-1 (Version None)
Quarter: 2011Q4

REPORT INFORMATION
  Report Type: 
  Country: None (occurrence: None)
  Receive Date: 20111230
  Receipt Date: 20111228
  Transmission Date: 20120403
  Serious: No
  Sender: FDA-Public Use
  Company Number: US-BAYER-2011-124517

PATIENT
  Age: 47 Year
  Sex: Female
  Weight: 68 kg

DRUGS (1)
  1. ALEVE (CAPLET) [Suspect]
     Indication: MYALGIA
     Dosage: 2 DF, QD
     Route: 048
     Dates: start: 20111226, end: 20111228

REACTIONS (1)
  - MYALGIA [None]
